FAERS Safety Report 8076934-6 (Version None)
Quarter: 2012Q1

REPORT INFORMATION
  Report Type: 
  Country: None (occurrence: None)
  Receive Date: 20120127
  Receipt Date: 20120112
  Transmission Date: 20120608
  Serious: Yes (Other)
  Sender: FDA-Public Use
  Company Number: PHHY2012PL004612

PATIENT
  Age: 65 Year
  Sex: Male

DRUGS (6)
  1. AZATHIOPRINE [Suspect]
     Dosage: 150 MG, UNK
  2. CYCLOSPORINE [Suspect]
     Indication: RENAL TRANSPLANT
     Dosage: 700 MG, UNK
  3. AZATHIOPRINE [Suspect]
     Dosage: 50 MG, UNK
  4. CYCLOSPORINE [Suspect]
     Dosage: 150 MG, UNK
  5. PREDNISONE [Concomitant]
     Dosage: 5 MG, UNK
  6. PREDNISONE [Concomitant]
     Dosage: 35 MG, UNK

REACTIONS (6)
  - ATRIAL FIBRILLATION [None]
  - ARTERIOSCLEROSIS [None]
  - GLOMERULAR FILTRATION RATE DECREASED [None]
  - BASAL CELL CARCINOMA [None]
  - PERIPHERAL ISCHAEMIA [None]
  - CORONARY ARTERY DISEASE [None]
